FAERS Safety Report 21163530 (Version 2)
Quarter: 2022Q3

REPORT INFORMATION
  Report Type: Spontaneous
  Country: JP (occurrence: JP)
  Receive Date: 20220802
  Receipt Date: 20220817
  Transmission Date: 20221026
  Serious: Yes (Hospitalization, Other)
  Sender: FDA-Public Use
  Company Number: JP-TEVA-2022-JP-2059915

PATIENT
  Age: 4 Decade
  Sex: Female

DRUGS (17)
  1. ETOPOSIDE [Suspect]
     Active Substance: ETOPOSIDE
     Indication: Endometrial adenocarcinoma
     Dosage: EVERY 4 WEEKS FOR 2 MONTHS
     Route: 065
  2. PACLITAXEL [Suspect]
     Active Substance: PACLITAXEL
     Indication: Endometrial adenocarcinoma
     Dosage: COMPOSITION OF PACLITAXEL, EACH ML OF STERILE, NON-PYROGENIC SOLUTION CONTAINS 6MG OF PACLITAXEL,...
     Route: 050
  3. PACLITAXEL [Suspect]
     Active Substance: PACLITAXEL
     Dosage: OVER 3 WEEKS
     Route: 065
  4. DOCETAXEL [Suspect]
     Active Substance: DOCETAXEL
     Indication: Endometrial adenocarcinoma
     Dosage: EVERY 80MG OF DOCETAXEL CONTAINS 2.16G OF POLYSORBATE 80 AND 1.58G OF ANHYDROUS ETHANOL AS ADDITIVES
     Route: 050
  5. CISPLATIN [Suspect]
     Active Substance: CISPLATIN
     Indication: Endometrial adenocarcinoma
     Dosage: OVER 3 WEEKS
     Route: 065
  6. BEVACIZUMAB [Suspect]
     Active Substance: BEVACIZUMAB
     Indication: Endometrial adenocarcinoma
     Dosage: OVER 3 WEEKS
     Route: 065
  7. CARBOPLATIN [Concomitant]
     Active Substance: CARBOPLATIN
     Indication: Endometrial adenocarcinoma
     Dosage: AREA UNDER THE CURVE (AUC) 5
     Route: 050
  8. IRINOTECAN [Concomitant]
     Active Substance: IRINOTECAN
     Indication: Endometrial adenocarcinoma
     Route: 065
  9. NEDAPLATIN [Concomitant]
     Active Substance: NEDAPLATIN
     Indication: Endometrial adenocarcinoma
     Route: 065
  10. PREDNISOLONE [Concomitant]
     Active Substance: PREDNISOLONE
     Indication: Premedication
     Route: 065
  11. HYDROCORTISONE [Concomitant]
     Active Substance: HYDROCORTISONE
     Indication: Premedication
     Route: 065
  12. HYDROCORTISONE [Concomitant]
     Active Substance: HYDROCORTISONE
     Route: 065
  13. PEMIROLAST [Concomitant]
     Indication: Premedication
     Dosage: 20 MILLIGRAM DAILY;
     Route: 065
  14. FEXOFENADINE [Concomitant]
     Active Substance: FEXOFENADINE HYDROCHLORIDE
     Indication: Premedication
     Dosage: 120 MILLIGRAM DAILY;
     Route: 065
  15. CHLORPHENIRAMINE [Concomitant]
     Active Substance: CHLORPHENIRAMINE
     Indication: Premedication
     Route: 040
  16. RANITIDINE [Concomitant]
     Active Substance: RANITIDINE
     Indication: Premedication
     Route: 065
  17. DEXAMETHASONE [Concomitant]
     Active Substance: DEXAMETHASONE
     Indication: Premedication
     Route: 065

REACTIONS (2)
  - Infusion related reaction [Recovered/Resolved]
  - Drug ineffective [Unknown]
